FAERS Safety Report 9922169 (Version 5)
Quarter: 2014Q2

REPORT INFORMATION
  Report Type: Report from Study
  Country: JP (occurrence: JP)
  Receive Date: 20140225
  Receipt Date: 20140403
  Transmission Date: 20141212
  Serious: Yes (Hospitalization)
  Sender: FDA-Public Use
  Company Number: JP-PFIZER INC-2014043478

PATIENT
  Age: 45 Year
  Sex: Female

DRUGS (9)
  1. TOFACITINIB CITRATE [Suspect]
     Indication: PSORIASIS
     Dosage: 10 MG, 2X/DAY
     Route: 048
     Dates: start: 20120131
  2. TELMISARTAN [Concomitant]
     Indication: HYPERTENSION
     Dosage: UNK
     Dates: start: 20130717
  3. PRAVASTATIN SODIUM [Concomitant]
     Indication: HYPERLIPIDAEMIA
     Dosage: UNK
  4. METFORMIN HYDROCHLORIDE [Concomitant]
     Indication: DIABETIC NEPHROPATHY
     Dosage: UNK
  5. METFORMIN HYDROCHLORIDE [Concomitant]
     Indication: HEPATIC STEATOSIS
  6. VILDAGLIPTIN [Concomitant]
     Indication: DIABETES MELLITUS
     Dosage: UNK
     Dates: start: 20130327
  7. ALLOPURINOL [Concomitant]
     Indication: GOUT
     Dosage: UNK
  8. ZOLPIDEM TARTRATE [Concomitant]
     Indication: INSOMNIA
     Dosage: UNK
     Dates: start: 20130723
  9. BROTIZOLAM [Concomitant]
     Indication: INSOMNIA
     Dosage: UNK
     Dates: start: 20130723

REACTIONS (1)
  - Diabetes mellitus [Recovering/Resolving]
